FAERS Safety Report 6644974-7 (Version None)
Quarter: 2010Q1

REPORT INFORMATION
  Report Type: 
  Country: None (occurrence: None)
  Receive Date: 20100322
  Receipt Date: 20100310
  Transmission Date: 20100710
  Serious: Yes (Other)
  Sender: FDA-Public Use
  Company Number: PHHY2010FR15341

PATIENT
  Sex: Male

DRUGS (2)
  1. NEORAL [Suspect]
     Indication: GLOMERULONEPHRITIS
     Dosage: 125 MG, BID (MORNING AND EVENING)
     Route: 048
     Dates: start: 20091204, end: 20091211
  2. ADALAT [Suspect]
     Indication: BLOOD PRESSURE
     Dosage: 1 DF (ONE IN MORNING AND ONE IN EVENING)
     Dates: start: 20091211

REACTIONS (4)
  - BURNING SENSATION [None]
  - CHILLS [None]
  - FATIGUE [None]
  - PRURITUS [None]
